FAERS Safety Report 5203796-4 (Version None)
Quarter: 2007Q1

REPORT INFORMATION
  Report Type: 
  Country: None (occurrence: None)
  Receive Date: 20070109
  Receipt Date: 20070109
  Transmission Date: 20070707
  Serious: Yes (Hospitalization, Other)
  Sender: FDA-Public Use
  Company Number: None

PATIENT
  Sex: Female
  Weight: 68.0396 kg

DRUGS (2)
  1. AVELOX [Suspect]
     Indication: BRONCHITIS
     Dosage: 400 MGS 1X DAILY PO
     Route: 048
  2. AVELOX [Suspect]
     Indication: INFLUENZA
     Dosage: 400 MGS 1X DAILY PO
     Route: 048

REACTIONS (3)
  - CONVULSION [None]
  - RASH [None]
  - THORACIC VERTEBRAL FRACTURE [None]
